FAERS Safety Report 19505754 (Version 12)
Quarter: 2022Q2

REPORT INFORMATION
  Report Type: Spontaneous
  Country: CA (occurrence: CA)
  Receive Date: 20210708
  Receipt Date: 20220601
  Transmission Date: 20220720
  Serious: Yes (Hospitalization, Other)
  Sender: FDA-Public Use
  Company Number: CA-CELLTRION INC.-2021CA009263

PATIENT

DRUGS (7)
  1. INFLECTRA [Suspect]
     Active Substance: INFLIXIMAB-DYYB
     Indication: Crohn^s disease
     Dosage: 5 MG/KG, EVERY (Q) 0, 2, 6 WEEKS THEN EVERY 8 WEEKS
     Route: 041
     Dates: start: 20210607
  2. INFLECTRA [Suspect]
     Active Substance: INFLIXIMAB-DYYB
     Dosage: 5 MG/KG, EVERY (Q) 0, 2, 6 WEEKS THEN EVERY 8 WEEKS
     Route: 041
     Dates: start: 20210629
  3. INFLECTRA [Suspect]
     Active Substance: INFLIXIMAB-DYYB
     Dosage: 5 MG/KG, EVERY (Q) 0, 2, 6 WEEKS THEN EVERY 8 WEEKS
     Route: 041
     Dates: start: 20210727
  4. INFLECTRA [Suspect]
     Active Substance: INFLIXIMAB-DYYB
     Dosage: 5 MG/KG, EVERY (Q) 0, 2, 6 WEEKS THEN EVERY 8 WEEKS
     Route: 041
     Dates: start: 20210927
  5. INFLECTRA [Suspect]
     Active Substance: INFLIXIMAB-DYYB
     Dosage: 5 MG/KG, EVERY (Q) 0, 2, 6 WEEKS THEN EVERY 8 WEEKS
     Route: 041
     Dates: start: 20211122
  6. INFLECTRA [Suspect]
     Active Substance: INFLIXIMAB-DYYB
     Dosage: 5 MG/KG, EVERY (Q) 0, 2, 6 WEEKS THEN EVERY 8 WEEKS
     Route: 041
     Dates: start: 20220202
  7. INFLECTRA [Suspect]
     Active Substance: INFLIXIMAB-DYYB
     Dosage: 5 MG/KG, EVERY (Q) 0, 2, 6 WEEKS THEN EVERY 8 WEEKS
     Route: 041
     Dates: start: 20220329

REACTIONS (12)
  - Pain [Unknown]
  - Condition aggravated [Not Recovered/Not Resolved]
  - Eye abscess [Not Recovered/Not Resolved]
  - Inappropriate schedule of product administration [Unknown]
  - Eye infection [Recovered/Resolved]
  - Cough [Not Recovered/Not Resolved]
  - Influenza [Unknown]
  - Muscle spasms [Unknown]
  - Diarrhoea [Unknown]
  - Hypersensitivity [Unknown]
  - Pruritus [Unknown]
  - Dyspnoea [Unknown]

NARRATIVE: CASE EVENT DATE: 20210101
